FAERS Safety Report 18029716 (Version 1)
Quarter: 2020Q3

REPORT INFORMATION
  Report Type: Spontaneous
  Country: US (occurrence: US)
  Receive Date: 20200715
  Receipt Date: 20200715
  Transmission Date: 20201103
  Serious: No
  Sender: FDA-Public Use
  Company Number: US-BIOMARINAP-US-2020-130916

PATIENT
  Age: 5 Year
  Sex: Male

DRUGS (1)
  1. ALDURAZYME [Suspect]
     Active Substance: LARONIDASE
     Indication: MUCOPOLYSACCHARIDOSIS I
     Route: 065

REACTIONS (5)
  - Condition aggravated [Unknown]
  - Musculoskeletal disorder [Unknown]
  - Blood immunoglobulin G increased [Unknown]
  - Neutralising antibodies positive [Unknown]
  - Walking disability [Unknown]
